FAERS Safety Report 9286679 (Version 3)
Quarter: 2013Q4

REPORT INFORMATION
  Report Type: Spontaneous
  Country: GB (occurrence: GB)
  Receive Date: 20130513
  Receipt Date: 20131115
  Transmission Date: 20140711
  Serious: Yes (Hospitalization)
  Sender: FDA-Public Use
  Company Number: GB-ASTRAZENECA-2013SE30762

PATIENT
  Age: 75 Year
  Sex: Male
  Weight: 81 kg

DRUGS (9)
  1. OMEPRAZOLE [Suspect]
     Route: 048
  2. RAMIPRIL [Suspect]
     Route: 048
  3. TAMSULOSIN HYDROCHLORIDE [Suspect]
     Route: 048
  4. AMLODIPINE [Concomitant]
     Route: 048
  5. ATORVASTATIN [Concomitant]
     Route: 048
  6. DOCETAXEL [Concomitant]
     Route: 042
     Dates: start: 20130114
  7. MIRTAZAPINE [Concomitant]
     Route: 048
  8. TIMOLOL [Concomitant]
  9. ZOLADEX [Concomitant]
     Route: 058
     Dates: start: 20121115

REACTIONS (5)
  - Red blood cell sedimentation rate increased [Not Recovered/Not Resolved]
  - Febrile neutropenia [Not Recovered/Not Resolved]
  - Haemoglobin decreased [Not Recovered/Not Resolved]
  - Leukopenia [Not Recovered/Not Resolved]
  - Diarrhoea [Not Recovered/Not Resolved]
